FAERS Safety Report 7551082-X (Version None)
Quarter: 2011Q2

REPORT INFORMATION
  Report Type: 
  Country: None (occurrence: None)
  Receive Date: 20110616
  Receipt Date: 20110610
  Transmission Date: 20111010
  Serious: Yes (Other)
  Sender: FDA-Public Use
  Company Number: IT-BRISTOL-MYERS SQUIBB COMPANY-15824154

PATIENT
  Age: 82 Year
  Sex: Male

DRUGS (5)
  1. EUTIROX [Concomitant]
     Dosage: EUTIROX 175 MICRO G TABS,1DF=  1 UNIT
  2. FOSICOMBI [Concomitant]
     Dosage: 1DF= 1 UNIT FOSICOMBI 20MG + 12.5MG ORAL TABS,
     Route: 048
  3. LASIX [Concomitant]
     Dosage: 1DF= 1 UNIT ,LASIX 0.25MG TABS,
  4. COUMADIN [Suspect]
     Indication: ATRIAL FIBRILLATION
     Dosage: 1DF= 1 UNIT
     Route: 048
     Dates: start: 20100101, end: 20110501
  5. LANOXIN [Concomitant]
     Dosage: 1DF=  1 UNIT,  LANOXIN 0.125MG TABS,

REACTIONS (5)
  - IRON DEFICIENCY ANAEMIA [None]
  - ANGIODYSPLASIA [None]
  - DIVERTICULUM [None]
  - GASTROINTESTINAL HAEMORRHAGE [None]
  - POLYP [None]
